FAERS Safety Report 5760207-8 (Version None)
Quarter: 2008Q2

REPORT INFORMATION
  Report Type: 
  Country: None (occurrence: None)
  Receive Date: 20080605
  Receipt Date: 20080529
  Transmission Date: 20081010
  Serious: Yes (Hospitalization, Other)
  Sender: FDA-Public Use
  Company Number: US-ABBOTT-08P-163-0450123-00

PATIENT
  Sex: Male
  Weight: 127.12 kg

DRUGS (5)
  1. DEPAKOTE ER [Suspect]
     Indication: EPILEPSY
     Route: 048
     Dates: end: 20070901
  2. DEPAKOTE ER [Suspect]
     Route: 048
     Dates: start: 20070901
  3. DEPAKOTE [Suspect]
     Indication: EPILEPSY
     Route: 048
     Dates: start: 19980101
  4. DEPAKOTE [Suspect]
  5. LAMOTRIGINE [Concomitant]
     Indication: CONVULSION

REACTIONS (18)
  - BLOOD GLUCOSE INCREASED [None]
  - COUGH [None]
  - DIABETES MELLITUS [None]
  - DYSPNOEA [None]
  - EYE INJURY [None]
  - FACIAL BONES FRACTURE [None]
  - FATIGUE [None]
  - GRAND MAL CONVULSION [None]
  - HAEMATOMA [None]
  - HEADACHE [None]
  - HEART RATE IRREGULAR [None]
  - LOSS OF CONSCIOUSNESS [None]
  - OXYGEN SATURATION DECREASED [None]
  - PRODUCTIVE COUGH [None]
  - PYREXIA [None]
  - SLEEP APNOEA SYNDROME [None]
  - TREMOR [None]
  - VIRAL INFECTION [None]
